FAERS Safety Report 24530666 (Version 2)
Quarter: 2025Q1

REPORT INFORMATION
  Report Type: Spontaneous
  Country: DE (occurrence: DE)
  Receive Date: 20241021
  Receipt Date: 20250116
  Transmission Date: 20250408
  Serious: Yes (Other)
  Sender: BRISTOL-MYERS SQUIBB COMPANY
  Company Number: DE-BRISTOL-MYERS SQUIBB COMPANY-2024-161313

PATIENT
  Age: 6 Decade
  Sex: Female

DRUGS (1)
  1. NIVOLUMAB [Suspect]
     Active Substance: NIVOLUMAB
     Indication: Malignant melanoma
     Dates: start: 2021

REACTIONS (3)
  - Malignant neoplasm progression [Unknown]
  - Immune-mediated myositis [Unknown]
  - Brain radiation necrosis [Unknown]

NARRATIVE: CASE EVENT DATE: 20230101
